FAERS Safety Report 5672304-6 (Version None)
Quarter: 2008Q1

REPORT INFORMATION
  Report Type: 
  Country: None (occurrence: None)
  Receive Date: 20080319
  Receipt Date: 20080305
  Transmission Date: 20080703
  Serious: Yes (Hospitalization)
  Sender: FDA-Public Use
  Company Number: GB-AMGEN-UK268848

PATIENT
  Sex: Female
  Weight: 56 kg

DRUGS (4)
  1. NEULASTA [Suspect]
     Indication: CHEMOTHERAPY
     Route: 058
     Dates: start: 20080101, end: 20080206
  2. EPIRUBICIN [Suspect]
     Route: 042
     Dates: start: 20080122
  3. SERETIDE [Concomitant]
  4. ALBUTEROL [Concomitant]

REACTIONS (1)
  - DYSPNOEA [None]
